FAERS Safety Report 6142839-0 (Version None)
Quarter: 2009Q2

REPORT INFORMATION
  Report Type: 
  Country: None (occurrence: None)
  Receive Date: 20090403
  Receipt Date: 20090324
  Transmission Date: 20091009
  Serious: Yes (Other)
  Sender: FDA-Public Use
  Company Number: US-AMGEN-QUU340113

PATIENT

DRUGS (2)
  1. ENBREL [Suspect]
     Indication: ARTHRITIS
  2. METHOTREXATE [Concomitant]

REACTIONS (3)
  - ARTHRITIS [None]
  - LUNG DISORDER [None]
  - PNEUMONIA [None]
